FAERS Safety Report 13163436 (Version 2)
Quarter: 2017Q1

REPORT INFORMATION
  Report Type: Report from Study
  Country: BR (occurrence: BR)
  Receive Date: 20170130
  Receipt Date: 20170202
  Transmission Date: 20170428
  Serious: No
  Sender: FDA-Public Use
  Company Number: BR-JNJFOC-20160619900

PATIENT
  Sex: Male
  Weight: 118 kg

DRUGS (1)
  1. STELARA [Suspect]
     Active Substance: USTEKINUMAB
     Indication: PSORIASIS
     Route: 058
     Dates: start: 20150623

REACTIONS (2)
  - Inappropriate schedule of drug administration [Unknown]
  - Psoriasis [Recovered/Resolved]
